FAERS Safety Report 19446567 (Version 2)
Quarter: 2021Q3

REPORT INFORMATION
  Report Type: Spontaneous
  Country: FR (occurrence: FR)
  Receive Date: 20210622
  Receipt Date: 20210706
  Transmission Date: 20211014
  Serious: Yes (Hospitalization)
  Sender: FDA-Public Use
  Company Number: FR-JNJFOC-20210629202

PATIENT
  Age: 14 Year
  Sex: Female
  Weight: 64.5 kg

DRUGS (4)
  1. PARACETAMOL [Suspect]
     Active Substance: ACETAMINOPHEN
     Indication: PRODUCT USED FOR UNKNOWN INDICATION
     Route: 048
     Dates: start: 20210503, end: 20210503
  2. IBUPROFEN. [Suspect]
     Active Substance: IBUPROFEN
     Indication: PRODUCT USED FOR UNKNOWN INDICATION
     Dosage: 4 A 6 GRAMMES
     Route: 048
     Dates: start: 20210503, end: 20210503
  3. IMODIUM [Suspect]
     Active Substance: LOPERAMIDE HYDROCHLORIDE
     Indication: PRODUCT USED FOR UNKNOWN INDICATION
     Route: 048
     Dates: start: 20210503, end: 20210503
  4. SPASFON [PHLOROGLUCINOL;TRIMETHYLPHLOROGLUCINOL] [Suspect]
     Active Substance: PHLOROGLUCINOL\1,3,5-TRIMETHOXYBENZENE
     Indication: PRODUCT USED FOR UNKNOWN INDICATION
     Route: 048
     Dates: start: 20210503, end: 20210503

REACTIONS (3)
  - Off label use [Unknown]
  - Pancreatitis acute [Recovering/Resolving]
  - Incorrect dose administered [Unknown]

NARRATIVE: CASE EVENT DATE: 20210504
